FAERS Safety Report 10998529 (Version 1)
Quarter: 2015Q2

REPORT INFORMATION
  Report Type: Spontaneous
  Country: GB (occurrence: None)
  Receive Date: 20150406
  Receipt Date: 20150406
  Transmission Date: 20150821
  Serious: Yes (Other)
  Sender: FDA-Public Use
  Company Number: GB-DEXPHARM-20150205

PATIENT
  Age: 77 Year
  Sex: Male

DRUGS (4)
  1. ASPIRIN. [Concomitant]
     Active Substance: ASPIRIN
  2. ISOSORBIDE MONONITRATE (ISOSORBIDE MONONITRATE) [Suspect]
     Active Substance: ISOSORBIDE MONONITRATE
     Dosage: 20 MG MILLIGRAM(S), 2 IN 1 DAYS
     Dates: start: 2014, end: 20150313
  3. BISOPROLOL [Concomitant]
     Active Substance: BISOPROLOL
  4. CANDESARTAN [Concomitant]
     Active Substance: CANDESARTAN

REACTIONS (5)
  - Skin exfoliation [None]
  - Sleep disorder [None]
  - Dry skin [None]
  - Rash papular [None]
  - Erythema [None]
